FAERS Safety Report 7137140-2 (Version None)
Quarter: 2010Q4

REPORT INFORMATION
  Report Type: 
  Country: None (occurrence: None)
  Receive Date: 20101206
  Receipt Date: 20070424
  Transmission Date: 20110411
  Serious: Yes (Death)
  Sender: FDA-Public Use
  Company Number: US-ACTELION-A-US2007-15194

PATIENT

DRUGS (14)
  1. ILOPROST INHALATION SOLUTION 5UG US [Suspect]
     Indication: PULMONARY HYPERTENSION
     Dosage: 5 UG, 6 X DAY
     Route: 055
     Dates: start: 20060815, end: 20070421
  2. PREDNISONE [Concomitant]
  3. NEXIUM [Concomitant]
  4. VIAGRA [Concomitant]
  5. K-DUR [Concomitant]
  6. LASIX [Concomitant]
  7. DIOVAN [Concomitant]
  8. ASPIRIN [Concomitant]
  9. SYNTHROID [Concomitant]
  10. EVISTA [Concomitant]
  11. PRAVACHOL [Concomitant]
  12. ATENOLOL [Concomitant]
  13. OXYGEN [Concomitant]
  14. COMBIVENT [Concomitant]

REACTIONS (3)
  - CONDITION AGGRAVATED [None]
  - DEATH [None]
  - PULMONARY FUNCTION TEST DECREASED [None]
